FAERS Safety Report 21233011 (Version 2)
Quarter: 2022Q4

REPORT INFORMATION
  Report Type: Spontaneous
  Country: DE (occurrence: DE)
  Receive Date: 20220819
  Receipt Date: 20221021
  Transmission Date: 20230113
  Serious: Yes (Life-Threatening, Hospitalization, Other)
  Sender: FDA-Public Use
  Company Number: DE-MYLANLABS-2022M1087533

PATIENT
  Age: 40 Year
  Sex: Male

DRUGS (1)
  1. GLATIRAMER ACETATE [Suspect]
     Active Substance: GLATIRAMER ACETATE
     Indication: Multiple sclerosis
     Dosage: 2APPLICATIONS,40 MILLIGRAM,3XW
     Route: 058
     Dates: start: 20220321, end: 20220404

REACTIONS (1)
  - Anaphylactic shock [Recovered/Resolved]

NARRATIVE: CASE EVENT DATE: 20220405
